FAERS Safety Report 5479899-6 (Version None)
Quarter: 2007Q4

REPORT INFORMATION
  Report Type: 
  Country: None (occurrence: None)
  Receive Date: 20071008
  Receipt Date: 20070928
  Transmission Date: 20080405
  Serious: Yes (Hospitalization)
  Sender: FDA-Public Use
  Company Number: FR-BOEHRINGER INGELHEIM PHARMACEUTICALS, INC.-2007-FF-00808FF

PATIENT
  Sex: Male

DRUGS (9)
  1. COMBIVENT [Suspect]
     Route: 055
  2. COAPROVEL [Concomitant]
     Route: 048
     Dates: end: 20070706
  3. VERAPAMIL [Concomitant]
     Route: 048
  4. TADENAN [Concomitant]
     Route: 048
     Dates: start: 20070301
  5. BROMAZEPAM [Concomitant]
     Route: 048
  6. NEXXAIR [Concomitant]
     Route: 055
  7. INIPOMP [Concomitant]
     Route: 048
     Dates: start: 20070301, end: 20070614
  8. INIPOMP [Concomitant]
     Route: 048
     Dates: start: 20070706
  9. AMLOR [Concomitant]

REACTIONS (4)
  - ERYTHEMA ANNULARE [None]
  - LEUKOPENIA [None]
  - PLATELET COUNT DECREASED [None]
  - URTICARIA [None]
